FAERS Safety Report 9548346 (Version 1)
Quarter: 2013Q3

REPORT INFORMATION
  Report Type: Spontaneous
  Country: US (occurrence: None)
  Receive Date: 20130923
  Receipt Date: 20130923
  Transmission Date: 20140515
  Serious: Yes (Hospitalization)
  Sender: FDA-Public Use
  Company Number: None

PATIENT
  Age: 73 Year
  Sex: Female

DRUGS (4)
  1. ERIBULIN MESYLATE [Suspect]
     Indication: CERVIX CARCINOMA
     Dosage: 1.9 MG DAY 1 AND DAY 8
     Route: 042
     Dates: start: 20130507, end: 20130916
  2. METFORMIN [Concomitant]
  3. BENAZEPRIL [Concomitant]
  4. ASPIRIN [Concomitant]

REACTIONS (5)
  - Anaemia [None]
  - Urosepsis [None]
  - Rectal haemorrhage [None]
  - Vaginal haemorrhage [None]
  - Hypotension [None]
